FAERS Safety Report 10786307 (Version 1)
Quarter: 2015Q1

REPORT INFORMATION
  Report Type: Spontaneous
  Country: JP (occurrence: JP)
  Receive Date: 20150211
  Receipt Date: 20150211
  Transmission Date: 20150721
  Serious: Yes (Other)
  Sender: FDA-Public Use
  Company Number: JP-ACTAVIS-2015-01597

PATIENT
  Age: 64 Year
  Sex: Male
  Weight: 47 kg

DRUGS (4)
  1. OXALIPLATIN (UNKNOWN) [Suspect]
     Active Substance: OXALIPLATIN
     Indication: COLORECTAL CANCER
     Dosage: 85 MG/M2, CYCLICAL
     Route: 042
     Dates: start: 201105
  2. FLUOROURACIL 5 FU [Suspect]
     Active Substance: FLUOROURACIL
     Indication: COLORECTAL CANCER
     Dosage: 400 MG/M2, SINGLE
     Route: 040
     Dates: start: 201105
  3. LEUCOVORIN CALCIUM. [Suspect]
     Active Substance: LEUCOVORIN CALCIUM
     Indication: COLORECTAL CANCER
     Dosage: 200 MG/M2, CYCLICAL
     Route: 042
     Dates: start: 201105
  4. FLUOROURACIL 5 FU [Suspect]
     Active Substance: FLUOROURACIL
     Dosage: 2400 MG/M2, CYCLICAL
     Route: 042
     Dates: start: 201105

REACTIONS (4)
  - Lactic acidosis [Recovered/Resolved]
  - Altered state of consciousness [Recovered/Resolved]
  - Nausea [Unknown]
  - Hiccups [Unknown]
